FAERS Safety Report 9840957 (Version 2)
Quarter: 2014Q1

REPORT INFORMATION
  Report Type: Spontaneous
  Country: JP (occurrence: JP)
  Receive Date: 20140124
  Receipt Date: 20140217
  Transmission Date: 20141002
  Serious: Yes (Other)
  Sender: FDA-Public Use
  Company Number: JP-ELI_LILLY_AND_COMPANY-JP201401005349

PATIENT
  Age: 11 Year
  Sex: Female

DRUGS (1)
  1. HUMATROPE [Suspect]
     Indication: TURNER^S SYNDROME
     Dosage: 0.35 MG/KG, WEEKLY (1/W)
     Route: 058

REACTIONS (1)
  - Glomerulonephritis membranous [Recovered/Resolved]
